FAERS Safety Report 8458395-8 (Version None)
Quarter: 2012Q2

REPORT INFORMATION
  Report Type: 
  Country: None (occurrence: None)
  Receive Date: 20120622
  Receipt Date: 20120619
  Transmission Date: 20120825
  Serious: Yes (Disabling)
  Sender: FDA-Public Use
  Company Number: MX-SANOFI-AVENTIS-2012SA043732

PATIENT
  Age: 73 Year
  Sex: Female
  Weight: 100 kg

DRUGS (2)
  1. AMARYL [Suspect]
     Indication: TYPE 2 DIABETES MELLITUS
     Route: 048
     Dates: start: 20100101, end: 20110101
  2. ANTIHYPERTENSIVES [Concomitant]
     Route: 048
     Dates: start: 19920101

REACTIONS (3)
  - HYPERGLYCAEMIA [None]
  - ABASIA [None]
  - PAIN IN EXTREMITY [None]
